FAERS Safety Report 6520825-6 (Version None)
Quarter: 2009Q4

REPORT INFORMATION
  Report Type: 
  Country: None (occurrence: None)
  Receive Date: 20091229
  Receipt Date: 20091214
  Transmission Date: 20100525
  Serious: Yes (Other)
  Sender: FDA-Public Use
  Company Number: CA-MEDIMMUNE-MEDI-0009988

PATIENT
  Sex: Male
  Weight: 1.1 kg

DRUGS (4)
  1. SYNAGIS [Suspect]
     Dates: end: 20091126
  2. HALIBORANGE [Concomitant]
     Route: 048
  3. CAFFEINE [Concomitant]
  4. DROR [Concomitant]
     Route: 048

REACTIONS (2)
  - APNOEA [None]
  - BODY TEMPERATURE FLUCTUATION [None]
